FAERS Safety Report 17215223 (Version 2)
Quarter: 2020Q4

REPORT INFORMATION
  Report Type: Report from Study
  Country: US (occurrence: US)
  Receive Date: 20191230
  Receipt Date: 20201229
  Transmission Date: 20210113
  Serious: Yes (Other)
  Sender: FDA-Public Use
  Company Number: US-CLOVIS ONCOLOGY-CLO-2019-002248

PATIENT
  Age: 64 Year
  Sex: Female

DRUGS (7)
  1. RUBRACA [Suspect]
     Active Substance: RUCAPARIB CAMSYLATE
     Indication: OVARIAN CANCER
     Dosage: 300 MG, BID
     Route: 048
     Dates: start: 20191022
  2. RUBRACA [Suspect]
     Active Substance: RUCAPARIB CAMSYLATE
     Dosage: 300 MG, BID
     Route: 048
     Dates: start: 20191104
  3. RUBRACA [Suspect]
     Active Substance: RUCAPARIB CAMSYLATE
     Dosage: 600 MG, BID
     Route: 048
     Dates: start: 20200624, end: 20200630
  4. RUBRACA [Suspect]
     Active Substance: RUCAPARIB CAMSYLATE
     Indication: FALLOPIAN TUBE CANCER
     Dosage: 300 MG, BID
     Route: 048
     Dates: start: 20190411, end: 2019
  5. RUBRACA [Suspect]
     Active Substance: RUCAPARIB CAMSYLATE
     Dosage: 600 MG, BID
     Route: 048
     Dates: start: 20200623
  6. RUBRACA [Suspect]
     Active Substance: RUCAPARIB CAMSYLATE
     Dosage: 300 MG, BID
     Route: 048
     Dates: start: 201909
  7. RUBRACA [Suspect]
     Active Substance: RUCAPARIB CAMSYLATE
     Dosage: 300 MG, BID
     Route: 048
     Dates: start: 20190903

REACTIONS (14)
  - Ovarian cancer recurrent [Unknown]
  - Ear pain [Recovered/Resolved]
  - Carbohydrate antigen 125 increased [Unknown]
  - Oral disorder [Recovering/Resolving]
  - White blood cell count decreased [Unknown]
  - Inappropriate schedule of product administration [Unknown]
  - Neutrophil count decreased [Recovering/Resolving]
  - Neuralgia [Unknown]
  - Throat irritation [Unknown]
  - Fatigue [Unknown]
  - Product dose omission issue [Unknown]
  - Decreased appetite [Unknown]
  - Musculoskeletal stiffness [Not Recovered/Not Resolved]
  - Hypoacusis [Not Recovered/Not Resolved]

NARRATIVE: CASE EVENT DATE: 2019
